FAERS Safety Report 8560083-4 (Version None)
Quarter: 2012Q3

REPORT INFORMATION
  Report Type: 
  Country: None (occurrence: None)
  Receive Date: 20120723
  Receipt Date: 20120705
  Transmission Date: 20120928
  Serious: Yes (Other)
  Sender: FDA-Public Use
  Company Number: EUS-2012-00506

PATIENT
  Age: 3 Year
  Sex: Female

DRUGS (1)
  1. ERWINASE (ASPARAGINASE) [Suspect]
     Indication: ACUTE LYMPHOCYTIC LEUKAEMIA

REACTIONS (3)
  - PLASMAPHERESIS [None]
  - TOXICITY TO VARIOUS AGENTS [None]
  - HYPERAMMONAEMIC ENCEPHALOPATHY [None]
